FAERS Safety Report 8301129-8 (Version None)
Quarter: 2012Q2

REPORT INFORMATION
  Report Type: 
  Country: None (occurrence: None)
  Receive Date: 20120420
  Receipt Date: 20120411
  Transmission Date: 20120825
  Serious: Yes (Other)
  Sender: FDA-Public Use
  Company Number: JP-EISAI INC-E7389-02304-SPO-JP

PATIENT
  Sex: Female
  Weight: 39 kg

DRUGS (8)
  1. VITAMIN B12 [Concomitant]
     Route: 048
     Dates: start: 20120127
  2. ASPIRIN [Concomitant]
     Route: 048
     Dates: start: 20120127, end: 20120203
  3. ASTOMIN [Concomitant]
     Indication: COUGH
     Route: 048
     Dates: start: 20120203, end: 20120217
  4. TRANSAMINE CAP [Concomitant]
     Indication: UPPER RESPIRATORY TRACT INFLAMMATION
     Route: 048
     Dates: start: 20120217
  5. MUCOSTA [Concomitant]
     Indication: UPPER RESPIRATORY TRACT INFLAMMATION
     Route: 048
     Dates: start: 20120217
  6. HALAVEN [Suspect]
     Indication: BREAST CANCER RECURRENT
     Route: 041
     Dates: start: 20120127, end: 20120224
  7. FLOMOX [Concomitant]
     Indication: INFLAMMATION
  8. NICHICODE [Concomitant]
     Indication: COUGH
     Route: 048
     Dates: start: 20120217

REACTIONS (1)
  - INTERSTITIAL LUNG DISEASE [None]
